FAERS Safety Report 8172765-7 (Version None)
Quarter: 2012Q1

REPORT INFORMATION
  Report Type: 
  Country: None (occurrence: None)
  Receive Date: 20120229
  Receipt Date: 20120227
  Transmission Date: 20120608
  Serious: Yes (Hospitalization)
  Sender: FDA-Public Use
  Company Number: US-AMGEN-USASP2012011260

PATIENT
  Age: 71 Year
  Sex: Male
  Weight: 101.6 kg

DRUGS (1)
  1. NPLATE [Suspect]
     Indication: IDIOPATHIC THROMBOCYTOPENIC PURPURA
     Dosage: 200 MUG, Q2WK
     Route: 058
     Dates: start: 20090817, end: 20120109

REACTIONS (1)
  - CEREBROVASCULAR ACCIDENT [None]
